FAERS Safety Report 9684205 (Version 1)
Quarter: 2013Q4

REPORT INFORMATION
  Report Type: Spontaneous
  Country: CA (occurrence: CA)
  Receive Date: 20131112
  Receipt Date: 20131112
  Transmission Date: 20140711
  Serious: Yes (Other)
  Sender: FDA-Public Use
  Company Number: CHPA2013CA016966

PATIENT
  Sex: Female

DRUGS (3)
  1. BUCKLEY^S COMPLETE [Suspect]
     Indication: MALAISE
     Dosage: UNK, UNK
     Route: 048
  2. BUCKLEY^S COMPLETE [Suspect]
     Indication: OFF LABEL USE
  3. BUCKLEY^S UNKNOWN [Suspect]
     Dosage: UNK, UNK
     Route: 048

REACTIONS (3)
  - Rib fracture [Recovered/Resolved]
  - Renal injury [Not Recovered/Not Resolved]
  - Malaise [Unknown]
